FAERS Safety Report 6666777-X (Version None)
Quarter: 2010Q2

REPORT INFORMATION
  Report Type: 
  Country: None (occurrence: None)
  Receive Date: 20100405
  Receipt Date: 20100323
  Transmission Date: 20101027
  Serious: Yes (Hospitalization, Other)
  Sender: FDA-Public Use
  Company Number: ES-JNJFOC-20091104107

PATIENT
  Age: 73 Year
  Sex: Female

DRUGS (1)
  1. TAVANIC [Suspect]
     Indication: CHRONIC OBSTRUCTIVE PULMONARY DISEASE
     Route: 048
     Dates: start: 20091019, end: 20091020

REACTIONS (3)
  - BRONCHOSPASM [None]
  - RASH [None]
  - RESPIRATORY FAILURE [None]
